FAERS Safety Report 12621540 (Version 1)
Quarter: 2016Q3

REPORT INFORMATION
  Report Type: Report from Study
  Country: US (occurrence: US)
  Receive Date: 20160804
  Receipt Date: 20160804
  Transmission Date: 20161109
  Serious: Yes (Other)
  Sender: FDA-Public Use
  Company Number: US-ROCHE-1808182

PATIENT
  Age: 63 Year
  Sex: Female
  Weight: 71.6 kg

DRUGS (2)
  1. VISMODEGIB [Suspect]
     Active Substance: VISMODEGIB
     Indication: OVARIAN NEOPLASM
     Route: 065
     Dates: start: 20111115, end: 20111129
  2. ERLOTINIB [Suspect]
     Active Substance: ERLOTINIB
     Indication: OVARIAN NEOPLASM
     Route: 065
     Dates: start: 20111115, end: 20111129

REACTIONS (1)
  - Platelet count decreased [Unknown]
